FAERS Safety Report 4796109-3 (Version None)
Quarter: 2005Q4

REPORT INFORMATION
  Report Type: 
  Country: None (occurrence: None)
  Receive Date: 20051007
  Receipt Date: 20050922
  Transmission Date: 20060501
  Serious: No
  Sender: FDA-Public Use
  Company Number: REM_00157_2005

PATIENT
  Age: 80 Year
  Sex: Female
  Weight: 73 kg

DRUGS (18)
  1. REMODULIN [Suspect]
     Indication: PULMONARY HYPERTENSION
     Dosage: 62.5 NG/KG/MIN CONTINUOUS SC
     Route: 058
     Dates: start: 20040820
  2. ALDACTONE [Concomitant]
  3. LASIX [Concomitant]
  4. COUMADIN [Concomitant]
  5. DIOVANE [Concomitant]
  6. NORVASC [Concomitant]
  7. PRIMIDONE [Concomitant]
  8. PROTONIX [Concomitant]
  9. K-DUR 10 [Concomitant]
  10. PROCRIT [Concomitant]
  11. TAMOXIFEN [Concomitant]
  12. DEPAKOTE [Concomitant]
  13. PREVACID [Concomitant]
  14. ALBUTEROL [Concomitant]
  15. PAXIL [Concomitant]
  16. ADVAIR DISKUS 100/50 [Concomitant]
  17. PILOGEL [Concomitant]
  18. OXYGEN [Concomitant]

REACTIONS (5)
  - HAEMORRHAGE [None]
  - INCISION SITE HAEMORRHAGE [None]
  - INFUSION SITE REACTION [None]
  - RED BLOOD CELL COUNT DECREASED [None]
  - THROMBOCYTOPENIA [None]
